FAERS Safety Report 5813595-8 (Version None)
Quarter: 2008Q3

REPORT INFORMATION
  Report Type: 
  Country: None (occurrence: None)
  Receive Date: 20080716
  Receipt Date: 20080716
  Transmission Date: 20090109
  Serious: No
  Sender: FDA-Public Use
  Company Number: None

PATIENT
  Sex: Male

DRUGS (1)
  1. HEAD + SHOULDERS PYRITHIONE ZINC, OCEAN LIFT/SHAMPOO [Suspect]

REACTIONS (1)
  - EYE IRRITATION [None]
